FAERS Safety Report 11937978 (Version 1)
Quarter: 2016Q1

REPORT INFORMATION
  Report Type: Report from Study
  Country: US (occurrence: US)
  Receive Date: 20160122
  Receipt Date: 20160122
  Transmission Date: 20160526
  Serious: Yes (Death)
  Sender: FDA-Public Use
  Company Number: US-ASTRAZENECA-2016SE05323

PATIENT
  Sex: Female

DRUGS (1)
  1. TOPROL XL [Suspect]
     Active Substance: METOPROLOL SUCCINATE
     Route: 048

REACTIONS (1)
  - Death [Fatal]
